FAERS Safety Report 8492740-2 (Version None)
Quarter: 2012Q3

REPORT INFORMATION
  Report Type: 
  Country: None (occurrence: None)
  Receive Date: 20120706
  Receipt Date: 20120629
  Transmission Date: 20120928
  Serious: Yes (Hospitalization)
  Sender: FDA-Public Use
  Company Number: DE-ABBOTT-12P-062-0951791-00

PATIENT
  Sex: Female
  Weight: 85 kg

DRUGS (3)
  1. HUMIRA [Suspect]
     Indication: ANKYLOSING SPONDYLITIS
     Route: 058
     Dates: start: 20091228
  2. ARCOXIA [Concomitant]
     Indication: PRODUCT USED FOR UNKNOWN INDICATION
     Dosage: 90 MG DAILY
     Dates: start: 20120501
  3. DIPYRONE TAB [Concomitant]
     Indication: PRODUCT USED FOR UNKNOWN INDICATION
     Dosage: 1500 MG DAILY
     Dates: start: 20120501

REACTIONS (3)
  - FOOT DEFORMITY [None]
  - ACQUIRED CLAW TOE [None]
  - JOINT DISLOCATION [None]
